FAERS Safety Report 17817772 (Version 1)
Quarter: 2020Q2

REPORT INFORMATION
  Report Type: Spontaneous
  Country: FR (occurrence: FR)
  Receive Date: 20200522
  Receipt Date: 20200522
  Transmission Date: 20200714
  Serious: Yes (Death)
  Sender: FDA-Public Use
  Company Number: FR-TEVA-2020-FR-1238581

PATIENT
  Age: 15 Year
  Sex: Male
  Weight: 70 kg

DRUGS (1)
  1. ISOTRETINOINE [Suspect]
     Active Substance: ISOTRETINOIN
     Indication: ACNE
     Dosage: 20 MG / D THE 1ST MONTH, 30 MG THE 2ND MONTH, 40 MG / D THE 3RD MONTH, 45 MG / D THE 4TH MONTH, THEN
     Route: 048
     Dates: start: 20190906, end: 20200428

REACTIONS (1)
  - Cell death [Fatal]

NARRATIVE: CASE EVENT DATE: 20200428
